FAERS Safety Report 7493552-9 (Version None)
Quarter: 2011Q2

REPORT INFORMATION
  Report Type: 
  Country: None (occurrence: None)
  Receive Date: 20110520
  Receipt Date: 20110513
  Transmission Date: 20111010
  Serious: Yes (Other)
  Sender: FDA-Public Use
  Company Number: JP-BRISTOL-MYERS SQUIBB COMPANY-15746118

PATIENT

DRUGS (1)
  1. MAXIPIME [Suspect]
     Indication: INFECTION

REACTIONS (1)
  - HYPOTENSION [None]
